FAERS Safety Report 9266132 (Version 1)
Quarter: 2013Q2

REPORT INFORMATION
  Report Type: Spontaneous
  Country: US (occurrence: US)
  Receive Date: 20130502
  Receipt Date: 20130502
  Transmission Date: 20140414
  Serious: No
  Sender: FDA-Public Use
  Company Number: US-009507513-1304USA017264

PATIENT
  Age: 24 Year
  Sex: Female
  Weight: 61.22 kg

DRUGS (2)
  1. IMPLANON [Suspect]
     Indication: CONTRACEPTION
     Dosage: UNK
     Route: 059
     Dates: start: 20130202
  2. IMPLANON [Suspect]
     Dosage: UNK
     Route: 059

REACTIONS (3)
  - Muscle spasms [Unknown]
  - Breast pain [Unknown]
  - Fatigue [Unknown]
